FAERS Safety Report 9443212 (Version 1)
Quarter: 2013Q3

REPORT INFORMATION
  Report Type: Spontaneous
  Country: NL (occurrence: NL)
  Receive Date: 20130806
  Receipt Date: 20130806
  Transmission Date: 20140515
  Serious: Yes (Death)
  Sender: FDA-Public Use
  Company Number: NL-BAYER-2013-091095

PATIENT
  Age: 58 Year
  Sex: Female

DRUGS (10)
  1. METRONIDAZOLE [Suspect]
     Indication: RETROPERITONEAL ABSCESS
  2. CIPROFLOXACIN [Suspect]
     Indication: RETROPERITONEAL ABSCESS
  3. AMOXICILLINE [Suspect]
     Indication: RETROPERITONEAL ABSCESS
  4. TRIMETHOPRIM-SULFAMETHOXAZOLE [Suspect]
     Indication: GASTROENTERITIS ESCHERICHIA COLI
  5. PIPERACILLIN W/TAZOBACTAM [Suspect]
     Indication: RETROPERITONEAL ABSCESS
  6. CEFUROXIME [Suspect]
     Indication: RETROPERITONEAL ABSCESS
  7. VANCOMYCIN [Suspect]
     Indication: RETROPERITONEAL ABSCESS
  8. PREDNISONE [Concomitant]
  9. CLEMASTINE [Concomitant]
  10. LINEZOLID [Concomitant]

REACTIONS (2)
  - Multi-organ failure [Fatal]
  - Drug reaction with eosinophilia and systemic symptoms [Fatal]
